FAERS Safety Report 9908604 (Version 1)
Quarter: 2014Q1

REPORT INFORMATION
  Report Type: Spontaneous
  Country: US (occurrence: None)
  Receive Date: 20140214
  Receipt Date: 20140214
  Transmission Date: 20141002
  Serious: Yes (Hospitalization)
  Sender: FDA-Public Use
  Company Number: None

PATIENT
  Age: 81 Year
  Sex: Female
  Weight: 68.9 kg

DRUGS (14)
  1. KCL [Suspect]
     Indication: NUTRITIONAL SUPPLEMENTATION
     Dosage: CHRONIC?10MEQ X 2 CAPS MWF PO?10MEQ X 1 CAP QHS PO
     Route: 048
  2. LISINOPRIL [Suspect]
     Indication: HYPERTENSION
     Dosage: CHRONIC
     Route: 048
  3. TRIMETHOPRIM [Suspect]
     Dosage: CHRONIC
     Route: 048
  4. ALLOPURINOL [Concomitant]
  5. ASA [Concomitant]
  6. CARBIDOPA-LEVODOPA [Concomitant]
  7. VIT D+B12 [Concomitant]
  8. MVI [Concomitant]
  9. MOBIC [Concomitant]
  10. MFUROSEMIDE [Concomitant]
  11. GABAPENTIN [Concomitant]
  12. ACIDOPHILUS [Concomitant]
  13. OMEPRAZOLE [Concomitant]
  14. PRAVASTATI [Concomitant]

REACTIONS (2)
  - Hyperkalaemia [None]
  - Electrocardiogram T wave abnormal [None]
